FAERS Safety Report 15090800 (Version 2)
Quarter: 2018Q3

REPORT INFORMATION
  Report Type: Report from Study
  Country: US (occurrence: US)
  Receive Date: 20180629
  Receipt Date: 20180829
  Transmission Date: 20181010
  Serious: Yes (Other)
  Sender: FDA-Public Use
  Company Number: US-BAYER-2018-119062

PATIENT
  Age: 81 Year
  Sex: Male

DRUGS (2)
  1. XOFIGO [Suspect]
     Active Substance: RADIUM RA-223 DICHLORIDE
     Indication: METASTASES TO BONE
     Dosage: 137.10 ?CI, ONCE EVERY 28 DAYS
     Route: 042
     Dates: start: 20180529, end: 20180529
  2. XOFIGO [Suspect]
     Active Substance: RADIUM RA-223 DICHLORIDE
     Indication: HORMONE-REFRACTORY PROSTATE CANCER
     Dosage: UNK
     Dates: start: 20180403, end: 20180727

REACTIONS (2)
  - Blood count abnormal [None]
  - Hospice care [None]

NARRATIVE: CASE EVENT DATE: 2018
